FAERS Safety Report 23153814 (Version 2)
Quarter: 2023Q4

REPORT INFORMATION
  Report Type: Report from Study
  Country: US (occurrence: US)
  Receive Date: 20231107
  Receipt Date: 20231212
  Transmission Date: 20240110
  Serious: Yes (Other)
  Sender: FDA-Public Use
  Company Number: US-INSMED, INC.-2023-03683-US

PATIENT
  Sex: Female

DRUGS (2)
  1. ARIKAYCE [Suspect]
     Active Substance: AMIKACIN
     Indication: Pneumonia bacterial
     Dosage: 590 MILLIGRAM, QD
     Route: 055
     Dates: start: 20221123, end: 2023
  2. ARIKAYCE [Suspect]
     Active Substance: AMIKACIN
     Indication: Mycobacterium avium complex infection

REACTIONS (5)
  - Inflammation [Unknown]
  - Pneumonitis [Unknown]
  - Tooth discolouration [Unknown]
  - Patient dissatisfaction with treatment [Unknown]
  - Therapy interrupted [Unknown]

NARRATIVE: CASE EVENT DATE: 20230101
